FAERS Safety Report 6290719-2 (Version None)
Quarter: 2009Q3

REPORT INFORMATION
  Report Type: 
  Country: None (occurrence: None)
  Receive Date: 20090728
  Receipt Date: 20090728
  Transmission Date: 20100115
  Serious: Yes (Life-Threatening, Other)
  Sender: FDA-Public Use
  Company Number: None

PATIENT
  Sex: Female
  Weight: 86.1834 kg

DRUGS (1)
  1. LOTENSIN [Suspect]
     Indication: HYPERTENSION
     Dosage: 20 MG 1 X PO
     Route: 048
     Dates: start: 20020401, end: 20090310

REACTIONS (5)
  - BIOPSY STOMACH [None]
  - COUGH [None]
  - FEELING ABNORMAL [None]
  - HAEMOPTYSIS [None]
  - VOMITING [None]
